FAERS Safety Report 9620155 (Version 1)
Quarter: 2013Q4

REPORT INFORMATION
  Report Type: Spontaneous
  Country: CA (occurrence: CA)
  Receive Date: 20131014
  Receipt Date: 20131014
  Transmission Date: 20140711
  Serious: Yes (Death)
  Sender: FDA-Public Use
  Company Number: CA-MILLENNIUM PHARMACEUTICALS, INC.-2013TUS001370

PATIENT
  Sex: 0

DRUGS (11)
  1. COLCHICINE [Suspect]
     Dosage: 40 TABLET 25 MG
  2. INDOMETHACIN /00003801/ [Suspect]
     Dosage: 50 TABLET (1.25 G)
  3. ZOPICLONE [Suspect]
     Dosage: 10TABLET 75 MG
  4. TOPIRAMATE [Concomitant]
  5. VALPROIC ACID [Concomitant]
  6. OLANZAPINE [Concomitant]
  7. LORAZEPAM [Concomitant]
  8. LEVOTHYROXINE [Concomitant]
  9. OXYCODONE [Concomitant]
  10. FUROSEMIDE [Concomitant]
  11. OMEPRAZOLE [Concomitant]

REACTIONS (7)
  - Shock [Fatal]
  - Multi-organ failure [Fatal]
  - Nausea [Unknown]
  - Vomiting [Unknown]
  - Abdominal pain [Unknown]
  - Overdose [Unknown]
  - Diarrhoea [Unknown]
